FAERS Safety Report 20529621 (Version 1)
Quarter: 2022Q1

REPORT INFORMATION
  Report Type: Spontaneous
  Country: FR (occurrence: FR)
  Receive Date: 20220301
  Receipt Date: 20220301
  Transmission Date: 20220423
  Serious: Yes (Life-Threatening, Hospitalization)
  Sender: FDA-Public Use
  Company Number: FR-ABBVIE-22K-056-4295568-00

PATIENT
  Age: 57 Year
  Sex: Male

DRUGS (6)
  1. VALPROATE SODIUM [Suspect]
     Active Substance: VALPROATE SODIUM
     Indication: Product used for unknown indication
     Route: 048
     Dates: start: 20190724, end: 20190724
  2. TAMSULOSIN HYDROCHLORIDE [Suspect]
     Active Substance: TAMSULOSIN HYDROCHLORIDE
     Indication: Product used for unknown indication
     Route: 048
     Dates: start: 20190724, end: 20190724
  3. LAMOTRIGINE [Suspect]
     Active Substance: LAMOTRIGINE
     Indication: Product administration error
     Route: 048
     Dates: start: 20190724, end: 20190724
  4. CLONAZEPAM [Suspect]
     Active Substance: CLONAZEPAM
     Indication: Product administration error
     Route: 048
     Dates: start: 20190724, end: 20190724
  5. LEVOMEPROMAZINE [Suspect]
     Active Substance: LEVOMEPROMAZINE
     Indication: Product used for unknown indication
     Route: 048
     Dates: start: 20190724, end: 20190724
  6. CAFFEINE\PHENOBARBITAL [Suspect]
     Active Substance: CAFFEINE\PHENOBARBITAL
     Indication: Product administration error
     Route: 048
     Dates: start: 20190724, end: 20190724

REACTIONS (3)
  - Altered state of consciousness [Recovered/Resolved]
  - Wrong patient received product [Unknown]
  - Wrong schedule [Unknown]

NARRATIVE: CASE EVENT DATE: 20190724
